FAERS Safety Report 15010426 (Version 4)
Quarter: 2018Q4

REPORT INFORMATION
  Report Type: Spontaneous
  Country: DK (occurrence: DK)
  Receive Date: 20180614
  Receipt Date: 20181228
  Transmission Date: 20190204
  Serious: Yes (Other)
  Sender: FDA-Public Use
  Company Number: PHHY2018DK075505

PATIENT
  Age: 53 Year
  Sex: Female

DRUGS (4)
  1. ESTRADIOL SANDOZ [Suspect]
     Active Substance: ESTRADIOL
     Indication: MENOPAUSAL SYMPTOMS
     Dosage: 1 MG, QD
     Route: 048
     Dates: start: 20160825
  2. ESTRADIOL SANDOZ [Suspect]
     Active Substance: ESTRADIOL
     Dosage: 2 MG, QD
     Route: 048
     Dates: start: 20160922
  3. ESTRADIOL SANDOZ [Suspect]
     Active Substance: ESTRADIOL
     Dosage: 2 MG, QD
     Route: 048
     Dates: start: 201705
  4. ESTRADIOL SANDOZ [Suspect]
     Active Substance: ESTRADIOL
     Indication: HORMONE THERAPY
     Dosage: 2 MG, QD
     Route: 048
     Dates: start: 20160819

REACTIONS (3)
  - Deep vein thrombosis [Recovered/Resolved]
  - Pain in extremity [Recovered/Resolved]
  - Thrombosis [Unknown]

NARRATIVE: CASE EVENT DATE: 20170518
